FAERS Safety Report 8678444 (Version 2)
Quarter: 2012Q4

REPORT INFORMATION
  Report Type: 
  Country: FR (occurrence: FR)
  Receive Date: 20120723
  Receipt Date: 20121031
  Transmission Date: 20130627
  Serious: Yes (Hospitalization)
  Sender: FDA-Public Use
  Company Number: FR-ROCHE-1087249

PATIENT
  Age: 57 Year
  Sex: Male

DRUGS (13)
  1. MABTHERA [Suspect]
     Indication: CHRONIC LYMPHOCYTIC LEUKAEMIA
     Route: 042
     Dates: start: 20120427, end: 20120430
  2. MABTHERA [Suspect]
     Route: 065
     Dates: start: 20120601, end: 20120604
  3. FLUDARABINE [Suspect]
     Indication: CHRONIC LYMPHOCYTIC LEUKAEMIA
     Route: 048
     Dates: start: 20120428, end: 20120430
  4. FLUDARABINE [Suspect]
     Route: 065
     Dates: start: 20120602, end: 20120604
  5. ENDOXAN [Suspect]
     Indication: CHRONIC LYMPHOCYTIC LEUKAEMIA
     Route: 048
     Dates: start: 20120428, end: 20120430
  6. ENDOXAN [Suspect]
     Route: 065
     Dates: start: 20120602, end: 20120604
  7. SEROPLEX [Concomitant]
     Route: 048
  8. DEDROGYL [Concomitant]
     Dosage: 15 mg/100 ml
     Route: 048
  9. PHOSPHONEUROS [Concomitant]
     Route: 048
  10. MAG 2 [Concomitant]
     Route: 048
  11. DIFRAREL 100 [Concomitant]
     Route: 048
  12. BACTRIM FORTE [Concomitant]
     Route: 048
     Dates: start: 20120507
  13. ZELITREX [Concomitant]
     Route: 048
     Dates: start: 20120507

REACTIONS (6)
  - Rash maculo-papular [Recovered/Resolved]
  - Pyrexia [Recovered/Resolved]
  - Neutropenia [Recovered/Resolved]
  - Oedema peripheral [Recovered/Resolved]
  - Hypercreatininaemia [Recovered/Resolved]
  - Alanine aminotransferase increased [Not Recovered/Not Resolved]
